FAERS Safety Report 17302568 (Version 2)
Quarter: 2020Q1

REPORT INFORMATION
  Report Type: Report from Study
  Country: None (occurrence: US)
  Receive Date: 20200122
  Receipt Date: 20200303
  Transmission Date: 20200409
  Serious: Yes (Other)
  Sender: FDA-Public Use
  Company Number: US-ABBVIE-20P-163-3221568-00

PATIENT
  Age: 64 Year
  Sex: Female

DRUGS (2)
  1. IMBRUVICA [Suspect]
     Active Substance: IBRUTINIB
     Indication: ACUTE LYMPHOCYTIC LEUKAEMIA
     Route: 048
     Dates: start: 20190525
  2. IMBRUVICA [Suspect]
     Active Substance: IBRUTINIB
     Route: 048
     Dates: start: 20190523

REACTIONS (6)
  - Product dose omission [Unknown]
  - Decreased appetite [Recovered/Resolved]
  - Gastric haemorrhage [Unknown]
  - Gastroenteritis viral [Recovered/Resolved]
  - Medical procedure [Unknown]
  - Contusion [Unknown]

NARRATIVE: CASE EVENT DATE: 20200116
